FAERS Safety Report 11023443 (Version 2)
Quarter: 2017Q2

REPORT INFORMATION
  Report Type: Spontaneous
  Country: US (occurrence: US)
  Receive Date: 20150413
  Receipt Date: 20170523
  Transmission Date: 20170829
  Serious: No
  Sender: FDA-Public Use
  Company Number: US-PFIZER INC-2015120489

PATIENT
  Age: 58 Year
  Sex: Female

DRUGS (1)
  1. CELECOXIB. [Suspect]
     Active Substance: CELECOXIB
     Dosage: UNK

REACTIONS (1)
  - Drug effect incomplete [Unknown]
